FAERS Safety Report 24113316 (Version 1)
Quarter: 2024Q3

REPORT INFORMATION
  Report Type: Spontaneous
  Country: CA (occurrence: CA)
  Receive Date: 20240719
  Receipt Date: 20240719
  Transmission Date: 20241017
  Serious: Yes (Other)
  Sender: TEVA
  Company Number: CA-TEVA-VS-3221405

PATIENT
  Age: 32 Year
  Sex: Female

DRUGS (1)
  1. PRAZOSIN [Suspect]
     Active Substance: PRAZOSIN
     Indication: Anxiolytic therapy
     Route: 048

REACTIONS (3)
  - Seizure [Recovered/Resolved]
  - Product availability issue [Recovered/Resolved]
  - Product substitution issue [Recovered/Resolved]
